FAERS Safety Report 7576528-2 (Version None)
Quarter: 2011Q2

REPORT INFORMATION
  Report Type: 
  Country: None (occurrence: None)
  Receive Date: 20110628
  Receipt Date: 20110608
  Transmission Date: 20111010
  Serious: Yes (Hospitalization, Other)
  Sender: FDA-Public Use
  Company Number: US-BAYER-200943569NA

PATIENT
  Age: 48 Year
  Sex: Male
  Weight: 152 kg

DRUGS (9)
  1. ACETYLSALICYLIC ACID SRT [Concomitant]
     Dosage: UNK
     Route: 048
     Dates: start: 20060101
  2. CARVEDILOL [Concomitant]
     Dosage: UNK
     Route: 048
     Dates: start: 20060101
  3. SIMVASTATIN [Concomitant]
     Dosage: UNK
     Route: 048
     Dates: start: 20060101
  4. LASIX [Concomitant]
     Indication: SWELLING
     Dosage: UNK
     Route: 048
     Dates: start: 19960101
  5. HUMULIN [INSULIN HUMAN] [Concomitant]
     Dosage: INJECTED
     Dates: start: 20050101
  6. ENOXAPARIN [Concomitant]
     Dosage: INJECTED
     Dates: start: 20060101
  7. TRASYLOL [Suspect]
     Indication: CORONARY ARTERY BYPASS
     Dosage: LOADING DOSE
     Route: 042
     Dates: start: 20060121
  8. ALTACE [Concomitant]
     Indication: HYPERTENSION
     Dosage: UNK
     Route: 048
     Dates: start: 20000101
  9. LASIX [Concomitant]
     Dosage: UNK
     Route: 048
     Dates: start: 20050101

REACTIONS (6)
  - RENAL FAILURE ACUTE [None]
  - UNEVALUABLE EVENT [None]
  - PAIN [None]
  - RENAL FAILURE [None]
  - EMOTIONAL DISTRESS [None]
  - INJURY [None]
